FAERS Safety Report 9374510 (Version 1)
Quarter: 2013Q2

REPORT INFORMATION
  Report Type: Spontaneous
  Country: CN (occurrence: CN)
  Receive Date: 20130628
  Receipt Date: 20130628
  Transmission Date: 20140414
  Serious: Yes (Other)
  Sender: FDA-Public Use
  Company Number: CN-JNJFOC-20130613120

PATIENT
  Age: 72 Year
  Sex: Male

DRUGS (1)
  1. SPORANOX [Suspect]
     Indication: CHRONIC OBSTRUCTIVE PULMONARY DISEASE
     Route: 048
     Dates: start: 20120331, end: 20120331

REACTIONS (3)
  - Somnolence [Recovering/Resolving]
  - Muscular weakness [Recovering/Resolving]
  - Slow response to stimuli [Recovering/Resolving]
